FAERS Safety Report 4925094-6 (Version None)
Quarter: 2006Q1

REPORT INFORMATION
  Report Type: 
  Country: None (occurrence: None)
  Receive Date: 20060228
  Receipt Date: 20050927
  Transmission Date: 20060701
  Serious: Yes (Life-Threatening, Other)
  Sender: FDA-Public Use
  Company Number: US-GLAXOSMITHKLINE-A0576042A

PATIENT
  Age: 48 Year
  Sex: Male
  Weight: 80 kg

DRUGS (2)
  1. EPZICOM [Suspect]
     Indication: HIV INFECTION
     Dosage: 1TAB PER DAY
     Route: 048
     Dates: start: 20050913, end: 20050901
  2. SUSTIVA [Concomitant]

REACTIONS (5)
  - ERYTHEMA MULTIFORME [None]
  - FATIGUE [None]
  - PRURITUS [None]
  - RASH [None]
  - RASH GENERALISED [None]
